FAERS Safety Report 10077432 (Version 1)
Quarter: 2014Q2

REPORT INFORMATION
  Report Type: Spontaneous
  Country: DE (occurrence: None)
  Receive Date: 20140411
  Receipt Date: 20140411
  Transmission Date: 20141212
  Serious: Yes (Other)
  Sender: FDA-Public Use
  Company Number: 2014-19307

PATIENT
  Sex: Female

DRUGS (1)
  1. EYLEA [Suspect]
     Indication: AGE-RELATED MACULAR DEGENERATION
     Dosage: UNK, EVERY 2 MONTHS
     Dates: start: 20130104

REACTIONS (5)
  - Eye haemorrhage [None]
  - Visual impairment [None]
  - Pain [None]
  - Ocular hyperaemia [None]
  - Off label use [None]
